FAERS Safety Report 9118696 (Version 3)
Quarter: 2013Q1

REPORT INFORMATION
  Report Type: Spontaneous
  Country: US (occurrence: US)
  Receive Date: 20130226
  Receipt Date: 20130319
  Transmission Date: 20140127
  Serious: No
  Sender: FDA-Public Use
  Company Number: US-B.I. PHARMACEUTICALS,INC./RIDGEFIELD-2013-BI-04717BP

PATIENT
  Sex: Female
  Weight: 55.34 kg

DRUGS (5)
  1. COMBIVENT [Suspect]
     Indication: CHRONIC OBSTRUCTIVE PULMONARY DISEASE
     Route: 055
  2. ADVAIR [Concomitant]
     Indication: ASTHMA
     Route: 055
  3. DILTIAZEM [Concomitant]
  4. ASPIRIN [Concomitant]
  5. MAXZIDE [Concomitant]

REACTIONS (3)
  - Rhinorrhoea [Recovered/Resolved]
  - Oropharyngeal pain [Recovered/Resolved]
  - Product quality issue [Recovered/Resolved]
